FAERS Safety Report 7286164 (Version 2)
Quarter: 2013Q3

REPORT INFORMATION
  Report Type: Report from Study
  Country: NL (occurrence: NL)
  Receive Date: 20100219
  Receipt Date: 20130904
  Transmission Date: 20140515
  Serious: Yes (Life-Threatening, Hospitalization)
  Sender: FDA-Public Use
  Company Number: NL-ROCHE-667863

PATIENT
  Age: 70 Year
  Sex: 0

DRUGS (8)
  1. CAPECITABINE [Suspect]
     Indication: GASTRIC CANCER
     Dosage: LAST DOSE PRIOR TO EVENT: 20 OCTOBER 2009.
     Route: 065
  2. EPIRUBICIN [Suspect]
     Indication: GASTRIC CANCER
     Dosage: LAST DOSE PRIOR TO EVENT: 20 OCTOBER 2009.
     Route: 065
  3. CISPLATIN [Suspect]
     Indication: GASTRIC CANCER
     Dosage: LAST DOSE PRIOR TO EVENT: 20 OCTOBER 2009.
     Route: 065
  4. LEXAPRO [Concomitant]
     Dosage: DRUG: LEXAPRO 20 UG.
     Route: 048
  5. LABETALOL [Concomitant]
     Dosage: DRUG: LABETALOL 50 MG.
     Route: 048
  6. FRAXODI [Concomitant]
  7. NOVORAPID [Concomitant]
     Route: 058
  8. LANTUS [Concomitant]
     Route: 058

REACTIONS (3)
  - Hyperglycaemia [Recovered/Resolved]
  - Feeding tube complication [Recovered/Resolved]
  - Venous thrombosis [Recovered/Resolved]
